FAERS Safety Report 9443430 (Version 3)
Quarter: 2014Q2

REPORT INFORMATION
  Report Type: Report from Study
  Country: JP (occurrence: JP)
  Receive Date: 20130806
  Receipt Date: 20140401
  Transmission Date: 20141212
  Serious: Yes (Hospitalization)
  Sender: FDA-Public Use
  Company Number: JP-GLAXOSMITHKLINE-B0912883A

PATIENT
  Age: 52 Year
  Sex: Female
  Weight: 51 kg

DRUGS (22)
  1. VOTRIENT 200MG [Suspect]
     Indication: OVARIAN CANCER
     Dosage: 800MG PER DAY
     Route: 048
     Dates: start: 20121207, end: 20130209
  2. VOTRIENT 200MG [Suspect]
     Indication: OVARIAN CANCER
     Dosage: 800MG PER DAY
     Route: 048
     Dates: start: 20130213, end: 20130507
  3. LOXOPROFEN [Concomitant]
     Indication: OVARIAN CANCER
     Route: 048
  4. MECOBALAMIN [Concomitant]
     Route: 048
  5. LYRICA [Concomitant]
     Route: 048
  6. MAGLAX [Concomitant]
     Route: 048
  7. PROTECADIN [Concomitant]
     Route: 048
  8. PRIMPERAN [Concomitant]
     Route: 048
  9. GLYCYRON [Concomitant]
     Route: 048
  10. URSODEOXYCHOLIC ACID [Concomitant]
     Route: 048
  11. MYSLEE [Concomitant]
     Route: 048
  12. LEBENIN [Concomitant]
     Indication: DIARRHOEA
     Route: 048
  13. CHINESE MEDICINE [Concomitant]
     Indication: NAUSEA
     Route: 048
  14. RINDERON [Concomitant]
     Indication: ERYTHEMA MULTIFORME
     Route: 065
  15. CHINESE MEDICINE [Concomitant]
     Route: 048
  16. DALACIN [Concomitant]
     Indication: IMPAIRED HEALING
     Route: 048
  17. OXYCONTIN [Concomitant]
     Route: 048
  18. OXINORM [Concomitant]
     Route: 048
  19. CODEINE PHOSPHATE [Concomitant]
     Route: 048
  20. UNKNOWN DRUG [Concomitant]
     Indication: IMPAIRED HEALING
     Route: 065
  21. LOPEMIN [Concomitant]
     Indication: DIARRHOEA
     Route: 048
  22. SILECE [Concomitant]
     Route: 048

REACTIONS (5)
  - Erythema multiforme [Recovering/Resolving]
  - Impaired healing [Not Recovered/Not Resolved]
  - Diarrhoea [Recovered/Resolved]
  - Hypertension [Recovered/Resolved]
  - Hepatic function abnormal [Recovered/Resolved]
